FAERS Safety Report 4389979-4 (Version None)
Quarter: 2004Q2

REPORT INFORMATION
  Report Type: 
  Country: None (occurrence: None)
  Receive Date: 20040630
  Receipt Date: 20040616
  Transmission Date: 20050107
  Serious: Yes (Other)
  Sender: FDA-Public Use
  Company Number: 2004040861

PATIENT
  Age: 59 Year
  Sex: Male

DRUGS (2)
  1. VFEND [Suspect]
     Indication: BRONCHOPULMONARY ASPERGILLOSIS
     Dosage: 400 MG (200 MG, 2 IN 1 D), ORAL
     Route: 048
     Dates: start: 20040511, end: 20040524
  2. CYTARABINE [Suspect]
     Indication: ILL-DEFINED DISORDER
     Dosage: 10400 MG (5200 MG, 2 IN 1 D)
     Dates: start: 20040517, end: 20040521

REACTIONS (3)
  - CEREBELLAR ATAXIA [None]
  - CONVULSION [None]
  - FALL [None]
